FAERS Safety Report 6498943-0 (Version None)
Quarter: 2009Q4

REPORT INFORMATION
  Report Type: 
  Country: None (occurrence: None)
  Receive Date: 20091215
  Receipt Date: 20091204
  Transmission Date: 20100525
  Serious: No
  Sender: FDA-Public Use
  Company Number: US-B.I. PHARMACEUTICALS,INC./RIDGEFIELD-2009-BP-12724BP

PATIENT
  Sex: Female

DRUGS (2)
  1. COMBIVENT [Suspect]
     Indication: BRONCHITIS
     Dosage: 6 PUF
     Route: 055
     Dates: start: 20070101
  2. SYMBICORT [Concomitant]
     Indication: BRONCHITIS

REACTIONS (3)
  - COUGH [None]
  - DYSGEUSIA [None]
  - DYSPNOEA [None]
